FAERS Safety Report 12125974 (Version 1)
Quarter: 2016Q1

REPORT INFORMATION
  Report Type: Spontaneous
  Country: US (occurrence: None)
  Receive Date: 20160226
  Receipt Date: 20160226
  Transmission Date: 20160526
  Serious: Yes (Hospitalization)
  Sender: FDA-Public Use
  Company Number: None

PATIENT
  Age: 60 Year
  Sex: Male
  Weight: 80 kg

DRUGS (3)
  1. APIXABAN [Concomitant]
     Active Substance: APIXABAN
  2. ELIQUIS [Suspect]
     Active Substance: APIXABAN
     Indication: ATRIAL FIBRILLATION
     Route: 048
  3. BI-PAP [Concomitant]
     Active Substance: DEVICE

REACTIONS (4)
  - Acute kidney injury [None]
  - Hypotension [None]
  - Seizure like phenomena [None]
  - Ulcer haemorrhage [None]

NARRATIVE: CASE EVENT DATE: 20160224
